FAERS Safety Report 9066031 (Version 2)
Quarter: 2013Q1

REPORT INFORMATION
  Report Type: Spontaneous
  Country: DE (occurrence: DE)
  Receive Date: 20130201
  Receipt Date: 20130322
  Transmission Date: 20140127
  Serious: Yes (Other)
  Sender: FDA-Public Use
  Company Number: DE-AMGEN-DEUSP2013007292

PATIENT
  Age: 70 Year
  Sex: Female

DRUGS (10)
  1. ENBREL [Suspect]
     Indication: PSORIATIC ARTHROPATHY
     Dosage: 50 MG, WEEKLY
     Dates: start: 20120322
  2. CORTISONE [Concomitant]
     Dosage: 5 MG, UNK
  3. RAMIPRIL [Concomitant]
     Dosage: UNK
  4. HYDROCHLOROTHIAZIDE [Concomitant]
     Dosage: UNK
  5. SIMVASTATIN [Concomitant]
     Dosage: UNK
  6. BISOPROLOL [Concomitant]
     Dosage: 20 MG, UNK
  7. ALLOPURINOL [Concomitant]
     Dosage: 300 UNK, UNK
  8. PANTOPRAZOLE [Concomitant]
     Dosage: 40 MG, UNK
  9. IBUFLAM                            /00109201/ [Concomitant]
     Dosage: 600 UNK, UNK
  10. LEVODOPA [Concomitant]
     Dosage: 100 UNK, UNK

REACTIONS (5)
  - Lip injury [Unknown]
  - Rheumatic disorder [Unknown]
  - Intervertebral disc disorder [Unknown]
  - Fall [Unknown]
  - Swelling face [Unknown]
